FAERS Safety Report 10120804 (Version 2)
Quarter: 2014Q2

REPORT INFORMATION
  Report Type: Spontaneous
  Country: US (occurrence: US)
  Receive Date: 20140425
  Receipt Date: 20140425
  Transmission Date: 20141212
  Serious: No
  Sender: FDA-Public Use
  Company Number: US-BRISTOL-MYERS SQUIBB COMPANY-20386959

PATIENT
  Age: 56 Year
  Sex: Female
  Weight: 76.64 kg

DRUGS (3)
  1. BYDUREON [Suspect]
     Indication: TYPE 2 DIABETES MELLITUS
     Route: 058
     Dates: start: 20140221, end: 20140228
  2. JANUVIA [Concomitant]
     Route: 048
  3. METFORMIN HCL [Concomitant]
     Route: 048

REACTIONS (3)
  - Lung infection [Recovered/Resolved]
  - Injection site reaction [Recovered/Resolved]
  - Abdominal pain [Recovered/Resolved]
